FAERS Safety Report 5958491-0 (Version None)
Quarter: 2008Q4

REPORT INFORMATION
  Report Type: 
  Country: None (occurrence: None)
  Receive Date: 20081119
  Receipt Date: 20081114
  Transmission Date: 20090506
  Serious: Yes (Life-Threatening)
  Sender: FDA-Public Use
  Company Number: GB-WYE-G02582608

PATIENT
  Sex: Male

DRUGS (2)
  1. GEMTUZUMAB OZOGAMICIN [Suspect]
     Dosage: UNKNOWN
     Dates: start: 20081112, end: 20081113
  2. DAUNORUBICIN HCL [Suspect]
     Dosage: UNKNOWN
     Dates: start: 20081112, end: 20081113

REACTIONS (4)
  - CARDIAC FAILURE [None]
  - HYPOTENSION [None]
  - SEPSIS [None]
  - TUMOUR LYSIS SYNDROME [None]
